FAERS Safety Report 4508113-0 (Version None)
Quarter: 2004Q4

REPORT INFORMATION
  Report Type: 
  Country: None (occurrence: None)
  Receive Date: 20041123
  Receipt Date: 20031020
  Transmission Date: 20050328
  Serious: No
  Sender: FDA-Public Use
  Company Number: US-GLAXOSMITHKLINE-A0430759A

PATIENT
  Age: 65 Year
  Sex: Female
  Weight: 56.8 kg

DRUGS (3)
  1. WELLBUTRIN [Suspect]
     Dosage: 100MG TWICE PER DAY
     Route: 048
     Dates: start: 20030903, end: 20031003
  2. PREDNISONE [Concomitant]
  3. PLAQUENIL [Concomitant]

REACTIONS (1)
  - LYMPHADENOPATHY [None]
